FAERS Safety Report 16518229 (Version 1)
Quarter: 2019Q3

REPORT INFORMATION
  Report Type: Spontaneous
  Country: US (occurrence: US)
  Receive Date: 20190702
  Receipt Date: 20190702
  Transmission Date: 20191004
  Serious: No
  Sender: FDA-Public Use
  Company Number: US-PFIZER INC-2016381910

PATIENT
  Age: 60 Year
  Sex: Male

DRUGS (36)
  1. VITAMIN B12 [Concomitant]
     Active Substance: CYANOCOBALAMIN
     Dosage: 1 DF, DAILY (TAKE ONE TABLET BY MOUTH DAILY)
     Route: 048
  2. OCEAN SALINE NASAL SPRAY [Concomitant]
     Active Substance: SODIUM CHLORIDE
     Dosage: UNK UNK, AS NEEDED (SPRAY BY NASAL ROUTE AS NEEDED)
     Route: 045
  3. LYRICA [Suspect]
     Active Substance: PREGABALIN
     Dosage: 200 MG, 3X/DAY
  4. XANAX [Concomitant]
     Active Substance: ALPRAZOLAM
     Dosage: 0.5 MG, 2X/DAY
     Route: 048
  5. ZOFRAN [Concomitant]
     Active Substance: ONDANSETRON HYDROCHLORIDE
     Indication: NAUSEA
     Dosage: 4 MG, AS NEEDED (TAKE 1 TAB BY MOUTH 4 TIMES DAILY)
     Route: 048
  6. ZOFRAN [Concomitant]
     Active Substance: ONDANSETRON HYDROCHLORIDE
     Indication: BACK PAIN
  7. ZOFRAN [Concomitant]
     Active Substance: ONDANSETRON HYDROCHLORIDE
     Indication: NEUROPATHY PERIPHERAL
  8. POLYETHYLENE GLYCOL;PROPYLENE GLYCOL [Concomitant]
     Dosage: UNK UNK, AS NEEDED (PLACE 1 DROP IN AFFECTED EYE(::I) AS NEEDED (DRY EYES))
  9. CRANBERRY. [Concomitant]
     Active Substance: CRANBERRY
     Dosage: 1 DF, DAILY (TAKE 1 TAB BY MOUTH DAILY)
     Route: 048
  10. DURAGESIC MAT [Concomitant]
     Active Substance: FENTANYL
     Dosage: UNK (1 PATCH BY TRANSDERMAL ROUTE EVERY 72 HOURS)
     Route: 062
  11. KENALOG [Concomitant]
     Active Substance: TRIAMCINOLONE ACETONIDE
     Dosage: UNK (APPLY THIN FILM TO AFFECTED AREA(S) TWICE DAILY UNTIL HEALED)
  12. ZOLPIDEM [Concomitant]
     Active Substance: ZOLPIDEM TARTRATE
     Indication: SLEEP DISORDER
     Dosage: 12.5 MG, AS NEEDED (TAKE 12.5 MG BY MOUTH NIGHTLY)
     Route: 048
  13. DILAUDID [Concomitant]
     Active Substance: HYDROMORPHONE HYDROCHLORIDE
     Dosage: 4 MG, UNK
  14. MACRODANTIN [Concomitant]
     Active Substance: NITROFURANTOIN
     Dosage: UNK
  15. POLYETHYLENE GLYCOL [Concomitant]
     Active Substance: POLYETHYLENE GLYCOLS
     Indication: CONSTIPATION
     Dosage: 17 G, DAILY (TAKE 17 G BY MOUTH DAILY, MAY TAKE TWICE A DAY PRN)
     Route: 048
  16. CHRONULAC [Concomitant]
     Active Substance: LACTULOSE
     Indication: CONSTIPATION
     Dosage: 45 ML, AS NEEDED (TAKE 45 ML BY MOUTH DAILY)
     Route: 048
  17. ATIVAN [Concomitant]
     Active Substance: LORAZEPAM
     Dosage: 1 MG, AS NEEDED (TAKE1 TABLET EVERY NIGHT)
     Route: 048
  18. HIPREX [Concomitant]
     Active Substance: METHENAMINE HIPPURATE
     Dosage: 1 G, 2X/DAY (WITH MEALS)
     Route: 048
  19. VITAMIN B-1 [Concomitant]
     Active Substance: THIAMINE HYDROCHLORIDE
     Dosage: 250 MG, DAILY
     Route: 048
  20. LIORESAL [Concomitant]
     Active Substance: BACLOFEN
     Dosage: 20 MG, 4X/DAY
     Route: 048
  21. VITAMIN D3 [Concomitant]
     Active Substance: CHOLECALCIFEROL
     Dosage: 5000 IU, DAILY
     Route: 048
  22. VSL#3 [Concomitant]
     Active Substance: PROBIOTICS NOS
     Dosage: 1 DF, DAILY (1 PACKET BY MOUTH)
     Route: 048
  23. GLUCOPHAGE [Concomitant]
     Active Substance: METFORMIN HYDROCHLORIDE
     Dosage: 1000 MG, 2X/DAY
     Route: 048
  24. SINGULAIR [Concomitant]
     Active Substance: MONTELUKAST SODIUM
     Dosage: 10 MG, 1X/DAY (TAKE 1 TAB BY MOUTH EVERY EVENING)
     Route: 048
  25. NASONEX [Concomitant]
     Active Substance: MOMETASONE FUROATE
     Dosage: 1 DF, 1X/DAY (SPRAY IN EACH NOSTRIL NIGHTLY AS DIRECTED)
     Route: 045
  26. VITAMIN B12 [Concomitant]
     Active Substance: CYANOCOBALAMIN
     Dosage: 1 ML, UNK (1 ML BY LNTRAMUSCULAR ROUTE EVERY 30 DAYS)
     Route: 030
  27. CARDIZEM CD [Concomitant]
     Active Substance: DILTIAZEM HYDROCHLORIDE
     Dosage: 180 MG, DAILY (1 CAP BY MOUTH DAILY (WITH LUNCH)
     Route: 048
  28. PRINIVIL [Concomitant]
     Active Substance: LISINOPRIL
     Dosage: 5 MG, DAILY
     Route: 048
  29. MYCOSTATIN [Concomitant]
     Active Substance: NYSTATIN
     Dosage: UNK UNK, AS NEEDED (APPLY 3 TIMES DALLY. APPLY THIN FILM TO AFFECTED AREA AS DIRECTED)
  30. KENALOG [Concomitant]
     Active Substance: TRIAMCINOLONE ACETONIDE
     Dosage: UNK UNK, 2X/DAY (APPLY THIN FILM TO AFFTED AREA(S) TWICE DAILY UNTIL HEALED)
  31. ELIQUIS [Concomitant]
     Active Substance: APIXABAN
     Dosage: 20 MG, 2X/DAY
     Route: 048
  32. DOCUSATE SODIUM. [Concomitant]
     Active Substance: DOCUSATE SODIUM
     Indication: CONSTIPATION
     Dosage: 100 MG, AS NEEDED (TAKE 100MG BY MOUTH 2 TIMES DAILY)
     Route: 048
  33. LASIX [Concomitant]
     Active Substance: FUROSEMIDE
     Dosage: 40 MG, DAILY
     Route: 048
  34. DUONEB [Concomitant]
     Active Substance: ALBUTEROL SULFATE\IPRATROPIUM BROMIDE
     Dosage: 3 ML, AS NEEDED (3 ML BY NEBULLZATION ROUTE 4 LIMES DALLY)
  35. ZESTRIL [Concomitant]
     Active Substance: LISINOPRIL
     Dosage: 5 MG, DAILY
     Route: 048
  36. STERILE WATER [Concomitant]
     Active Substance: WATER
     Dosage: UNK (120 ML IRRIGATION ROUTE DAILY)

REACTIONS (1)
  - Confusional state [Unknown]
